FAERS Safety Report 5069600-2 (Version None)
Quarter: 2006Q3

REPORT INFORMATION
  Report Type: 
  Country: None (occurrence: None)
  Receive Date: 20060731
  Receipt Date: 20060721
  Transmission Date: 20061208
  Serious: Yes (Other)
  Sender: FDA-Public Use
  Company Number: FRWYE310121JUL06

PATIENT
  Age: 39 Year
  Sex: Female

DRUGS (7)
  1. LEVONORGESTREL AND ETHINYL ESTRADIOL [Suspect]
     Indication: CONTRACEPTION
     Dosage: 1 TABLET 1X PER 1 DAY, ORAL
     Route: 048
     Dates: end: 20030131
  2. ALPRAZOLAM [Suspect]
     Indication: ANXIETY
     Dosage: ORAL
     Route: 048
     Dates: end: 20030131
  3. CATAPRESAN (CLONIDINE, , 0) [Suspect]
     Indication: HYPERTENSION
     Dosage: ORAL
     Route: 048
     Dates: start: 20030201
  4. FOSINOPRIL (FOSINOPRIL, , 0) [Suspect]
     Indication: HYPERTENSION
     Dosage: ORAL
     Route: 048
     Dates: end: 20030131
  5. HYDROCHLOROTHIAZIDE (HYDROCHLOROTHIAZIDE, , 0) [Suspect]
     Indication: HYPERTENSION
     Dosage: ORAL
     Route: 048
     Dates: end: 20030131
  6. LEVOTHYROXINE SODIUM [Suspect]
     Indication: HYPOTHYROIDISM
     Dosage: ORAL
     Route: 048
  7. LORAZEPAM [Suspect]
     Indication: ANXIETY
     Dosage: ORAL
     Route: 048
     Dates: start: 20030201

REACTIONS (7)
  - ABORTION INDUCED [None]
  - DRUG EXPOSURE DURING PREGNANCY [None]
  - DRUG INEFFECTIVE [None]
  - FOETAL DISORDER [None]
  - OLIGOHYDRAMNIOS [None]
  - RENAL HYPERTROPHY [None]
  - UNINTENDED PREGNANCY [None]
